FAERS Safety Report 14011555 (Version 2)
Quarter: 2017Q4

REPORT INFORMATION
  Report Type: Spontaneous
  Country: US (occurrence: US)
  Receive Date: 20170926
  Receipt Date: 20171002
  Transmission Date: 20180321
  Serious: Yes (Hospitalization)
  Sender: FDA-Public Use
  Company Number: US-ROCHE-1997289

PATIENT
  Age: 89 Year
  Sex: Female
  Weight: 54.48 kg

DRUGS (2)
  1. ACTIVASE [Suspect]
     Active Substance: ALTEPLASE
     Indication: CEREBROVASCULAR ACCIDENT
     Dosage: X1 IV BOLUS
     Route: 040
     Dates: start: 20170723
  2. ACTIVASE [Suspect]
     Active Substance: ALTEPLASE
     Dosage: 44.06 IV X1
     Route: 042
     Dates: start: 20170723

REACTIONS (1)
  - Cerebral haemorrhage [Recovered/Resolved]

NARRATIVE: CASE EVENT DATE: 20170724
